FAERS Safety Report 13152006 (Version 2)
Quarter: 2017Q1

REPORT INFORMATION
  Report Type: Spontaneous
  Country: FR (occurrence: FR)
  Receive Date: 20170125
  Receipt Date: 20170126
  Transmission Date: 20170428
  Serious: Yes (Hospitalization)
  Sender: FDA-Public Use
  Company Number: FR-PFIZER INC-2017027621

PATIENT
  Age: 37 Year
  Sex: Male

DRUGS (9)
  1. VFEND [Suspect]
     Active Substance: VORICONAZOLE
     Indication: FUNGAL INFECTION
     Dosage: 200 MG, 2X/DAY
     Route: 048
     Dates: start: 20161116, end: 20170111
  2. OXYCODONE MYLAN LP [Suspect]
     Active Substance: OXYCODONE
     Dosage: 20 MG, 2X/DAY
     Route: 048
     Dates: start: 20161128, end: 20161204
  3. LYRICA [Suspect]
     Active Substance: PREGABALIN
     Indication: NEURALGIA
     Dosage: 25 MG, 2X/DAY
     Route: 048
     Dates: start: 20161125, end: 20161130
  4. OXYCODONE MYLAN LP [Suspect]
     Active Substance: OXYCODONE
     Dosage: 15 MG, 2X/DAY
     Route: 048
     Dates: start: 20161125, end: 20161127
  5. OXYNORMORO [Suspect]
     Active Substance: OXYCODONE
     Indication: PAIN
     Dosage: 1 TO 6 TABLETS DAILY, AS NEEDED
     Route: 048
     Dates: start: 20161122, end: 20170111
  6. LAROXYL [Concomitant]
     Active Substance: AMITRIPTYLINE
     Indication: NEURALGIA
     Dosage: 5 GTT, 1X/DAY
     Dates: start: 20161125
  7. OXYCODONE MYLAN LP [Suspect]
     Active Substance: OXYCODONE
     Indication: PAIN
     Dosage: 10 MG, 2X/DAY
     Route: 048
     Dates: start: 20161122, end: 20161124
  8. OXYCODONE MYLAN LP [Suspect]
     Active Substance: OXYCODONE
     Dosage: 20 MG TWICE IN THE MORNING AND TWICE IN THE EVENING
     Route: 048
     Dates: start: 20161205
  9. LYRICA [Suspect]
     Active Substance: PREGABALIN
     Dosage: 50 MG, 2X/DAY
     Route: 048
     Dates: start: 20161130

REACTIONS (8)
  - Somnolence [Recovered/Resolved]
  - Dizziness [Recovered/Resolved]
  - Confusional state [Recovered/Resolved]
  - Nervousness [Recovering/Resolving]
  - Disturbance in attention [Recovering/Resolving]
  - Agitation [Recovering/Resolving]
  - Tremor [Recovering/Resolving]
  - Muscle spasms [Recovering/Resolving]

NARRATIVE: CASE EVENT DATE: 201701
